FAERS Safety Report 14431693 (Version 1)
Quarter: 2018Q1

REPORT INFORMATION
  Report Type: Spontaneous
  Country: TW (occurrence: TW)
  Receive Date: 20180124
  Receipt Date: 20180124
  Transmission Date: 20180509
  Serious: Yes (Death)
  Sender: FDA-Public Use
  Company Number: TW-JNJFOC-20180123310

PATIENT
  Sex: Male
  Weight: 66.6 kg

DRUGS (176)
  1. LASIX [Concomitant]
     Active Substance: FUROSEMIDE
     Dosage: AT BEDTIME
     Route: 042
     Dates: start: 20171203, end: 20171204
  2. LASIX [Concomitant]
     Active Substance: FUROSEMIDE
     Dosage: AT BEDTIME
     Route: 042
     Dates: start: 20171204, end: 20171205
  3. MAGNESIUM SULFATE. [Concomitant]
     Active Substance: MAGNESIUM SULFATE
     Dates: start: 20171211, end: 20171213
  4. FLOMOXEF SODIUM [Concomitant]
     Active Substance: FLOMOXEF SODIUM
     Route: 042
     Dates: start: 20171211, end: 20171218
  5. FLOMOXEF SODIUM [Concomitant]
     Active Substance: FLOMOXEF SODIUM
     Route: 042
     Dates: start: 20171224, end: 20171226
  6. ROSIS [Concomitant]
     Active Substance: FUROSEMIDE
     Route: 048
     Dates: start: 20171215, end: 20171223
  7. MUACTION [Concomitant]
     Route: 048
     Dates: start: 20171218, end: 20171219
  8. FOLINIC ACID [Concomitant]
     Active Substance: LEUCOVORIN
     Indication: CHOLANGIOCARCINOMA
     Dosage: CYCLE 3
     Route: 065
     Dates: start: 20170803
  9. NOREPINEPHRINE. [Concomitant]
     Active Substance: NOREPINEPHRINE
     Route: 042
     Dates: start: 20171201, end: 20171201
  10. DEXTROSE. [Concomitant]
     Active Substance: DEXTROSE
     Dosage: 250 CC
     Route: 042
     Dates: start: 20171201, end: 20171201
  11. CHLORPHENIRAMINE. [Concomitant]
     Active Substance: CHLORPHENIRAMINE
     Route: 042
     Dates: start: 20171201, end: 20171201
  12. CHLORPHENIRAMINE. [Concomitant]
     Active Substance: CHLORPHENIRAMINE
     Route: 042
     Dates: start: 20171209, end: 20171210
  13. NORMAL SALINE [Concomitant]
     Active Substance: SODIUM CHLORIDE
     Dosage: 500 CC
     Route: 042
     Dates: start: 20171202, end: 20171203
  14. NORMAL SALINE [Concomitant]
     Active Substance: SODIUM CHLORIDE
     Dosage: 500 CC
     Route: 042
     Dates: start: 20171211, end: 20171212
  15. NORMAL SALINE [Concomitant]
     Active Substance: SODIUM CHLORIDE
     Dosage: 500 CC
     Route: 042
     Dates: start: 20170223, end: 20171224
  16. SOLU-CORTEF [Concomitant]
     Active Substance: HYDROCORTISONE SODIUM SUCCINATE
     Route: 042
     Dates: start: 20171211, end: 20171212
  17. PLASBUMIN [Concomitant]
     Active Substance: ALBUMIN HUMAN
     Dosage: 1 BOT
     Route: 042
     Dates: start: 20171201, end: 20171204
  18. NYSTATIN. [Concomitant]
     Active Substance: NYSTATIN
     Route: 048
     Dates: start: 20171203, end: 20171218
  19. LASIX [Concomitant]
     Active Substance: FUROSEMIDE
     Dosage: AT BEDTIME
     Route: 042
     Dates: start: 20171213, end: 20171214
  20. LASIX [Concomitant]
     Active Substance: FUROSEMIDE
     Dosage: AT BEDTIME
     Route: 042
     Dates: start: 20171213, end: 20171215
  21. MAGNESIUM SULFATE. [Concomitant]
     Active Substance: MAGNESIUM SULFATE
     Dates: start: 20171206, end: 20171207
  22. SPIROTONE [Concomitant]
     Route: 048
     Dates: start: 20171218, end: 20171224
  23. FLOMOXEF SODIUM [Concomitant]
     Active Substance: FLOMOXEF SODIUM
     Route: 042
     Dates: start: 20171224, end: 20171225
  24. PREDNISOLONE. [Concomitant]
     Active Substance: PREDNISOLONE
     Dosage: AFTERNOON OR EVENING
     Route: 048
     Dates: start: 20171213, end: 20171214
  25. DACARBAZINE. [Concomitant]
     Active Substance: DACARBAZINE
     Dosage: CYCLE 2
     Route: 065
     Dates: start: 20170929
  26. EVEROLIMUS. [Concomitant]
     Active Substance: EVEROLIMUS
     Indication: CHOLANGIOCARCINOMA
     Dosage: CYCLE 3
     Route: 065
     Dates: start: 20170803
  27. FLUOROURACIL. [Concomitant]
     Active Substance: FLUOROURACIL
     Indication: CHOLANGIOCARCINOMA
     Dosage: CYCLE 3
     Route: 065
     Dates: start: 20170803
  28. TRAMAL [Concomitant]
     Active Substance: TRAMADOL
     Route: 042
     Dates: start: 20171205, end: 20171218
  29. AMINO ACIDS NOS W/POLYPEPTIDE [Concomitant]
     Dosage: 1 BOT
     Route: 042
     Dates: start: 20171203, end: 20171204
  30. CHLORPHENIRAMINE. [Concomitant]
     Active Substance: CHLORPHENIRAMINE
     Route: 042
     Dates: start: 20171202, end: 20171203
  31. NORMAL SALINE [Concomitant]
     Active Substance: SODIUM CHLORIDE
     Dosage: 500 CC
     Route: 042
     Dates: start: 20171224, end: 20171226
  32. SOLU-CORTEF [Concomitant]
     Active Substance: HYDROCORTISONE SODIUM SUCCINATE
     Route: 042
     Dates: start: 20171211, end: 20171212
  33. KCL [Concomitant]
     Active Substance: POTASSIUM CHLORIDE
     Route: 042
     Dates: start: 20171204, end: 20171205
  34. KCL [Concomitant]
     Active Substance: POTASSIUM CHLORIDE
     Route: 042
     Dates: start: 20171205, end: 20171206
  35. KCL [Concomitant]
     Active Substance: POTASSIUM CHLORIDE
     Route: 042
     Dates: start: 20171207, end: 20171208
  36. LASIX [Concomitant]
     Active Substance: FUROSEMIDE
     Dosage: AT BEDTIME
     Route: 042
     Dates: start: 20171206, end: 20171207
  37. LASIX [Concomitant]
     Active Substance: FUROSEMIDE
     Dosage: AT BEDTIME
     Route: 042
     Dates: start: 20171206, end: 20171207
  38. ROLIKAN [Concomitant]
     Route: 042
     Dates: start: 20171224, end: 20171226
  39. LOPERAM [Concomitant]
     Route: 048
     Dates: start: 20171203, end: 20171204
  40. MAGNESIUM SULFATE. [Concomitant]
     Active Substance: MAGNESIUM SULFATE
     Dates: start: 20171213, end: 20171215
  41. SPIROTONE [Concomitant]
     Route: 048
     Dates: start: 20171205, end: 20171206
  42. LENOGRASTIM [Concomitant]
     Active Substance: LENOGRASTIM
     Route: 058
     Dates: start: 20171208, end: 20171212
  43. MORPHINE HCL [Concomitant]
     Active Substance: MORPHINE HYDROCHLORIDE
     Route: 042
     Dates: start: 20171211, end: 20171212
  44. DACARBAZINE. [Concomitant]
     Active Substance: DACARBAZINE
     Dosage: CYCLE 1
     Route: 065
     Dates: start: 20170830
  45. LACTULOSE. [Concomitant]
     Active Substance: LACTULOSE
     Dosage: BOT (AS NECESSARY)
     Route: 048
     Dates: start: 20171224, end: 20171226
  46. TRAMAL [Concomitant]
     Active Substance: TRAMADOL
     Route: 042
     Dates: start: 20171206, end: 20171206
  47. CIPROXIN [Concomitant]
     Active Substance: CIPROFLOXACIN
     Route: 042
     Dates: start: 20171201, end: 20171201
  48. NOREPINEPHRINE. [Concomitant]
     Active Substance: NOREPINEPHRINE
     Route: 042
     Dates: start: 20171201, end: 20171201
  49. DEXTROSE. [Concomitant]
     Active Substance: DEXTROSE
     Dosage: 250 CC
     Route: 042
     Dates: start: 20171201, end: 20171201
  50. DEXTROSE. [Concomitant]
     Active Substance: DEXTROSE
     Dosage: 500 CC
     Route: 042
     Dates: start: 20171224, end: 20171226
  51. CHLORPHENIRAMINE. [Concomitant]
     Active Substance: CHLORPHENIRAMINE
     Route: 042
     Dates: start: 20171206, end: 20171207
  52. CHLORPHENIRAMINE. [Concomitant]
     Active Substance: CHLORPHENIRAMINE
     Route: 042
     Dates: start: 20171224, end: 20171225
  53. NORMAL SALINE [Concomitant]
     Active Substance: SODIUM CHLORIDE
     Dosage: 250 CC
     Route: 042
     Dates: start: 20171201, end: 20171204
  54. NORMAL SALINE [Concomitant]
     Active Substance: SODIUM CHLORIDE
     Dosage: 250 CC
     Route: 042
     Dates: start: 20171207, end: 20171210
  55. NORMAL SALINE [Concomitant]
     Active Substance: SODIUM CHLORIDE
     Dosage: 500 CC
     Route: 042
     Dates: start: 20171224, end: 20171225
  56. NORMAL SALINE [Concomitant]
     Active Substance: SODIUM CHLORIDE
     Dosage: 500 CC
     Route: 042
     Dates: start: 20171224, end: 20171225
  57. GLUCOSE [Concomitant]
     Active Substance: DEXTROSE
     Dosage: 2 BG, 400 ML
     Route: 042
     Dates: start: 20171201, end: 20171203
  58. GLUCOSE [Concomitant]
     Active Substance: DEXTROSE
     Dosage: 2 BG, 400 ML
     Route: 042
     Dates: start: 20171203, end: 20171203
  59. PLASBUMIN [Concomitant]
     Active Substance: ALBUMIN HUMAN
     Dosage: 1 BOT
     Route: 042
     Dates: start: 20171204, end: 20171207
  60. KCL [Concomitant]
     Active Substance: POTASSIUM CHLORIDE
     Route: 042
     Dates: start: 20171205, end: 20171205
  61. KCL [Concomitant]
     Active Substance: POTASSIUM CHLORIDE
     Route: 042
     Dates: start: 20171208, end: 20171213
  62. KCL [Concomitant]
     Active Substance: POTASSIUM CHLORIDE
     Route: 042
     Dates: start: 20171211, end: 20171213
  63. NYSTATIN. [Concomitant]
     Active Substance: NYSTATIN
     Route: 048
     Dates: start: 20171201, end: 20171203
  64. LASIX [Concomitant]
     Active Substance: FUROSEMIDE
     Dosage: AT BEDTIME
     Route: 042
     Dates: start: 20171205, end: 20171206
  65. LASIX [Concomitant]
     Active Substance: FUROSEMIDE
     Dosage: AT BEDTIME
     Route: 042
     Dates: start: 20171206, end: 20171207
  66. LASIX [Concomitant]
     Active Substance: FUROSEMIDE
     Dosage: AT BEDTIME
     Route: 042
     Dates: start: 20171207, end: 20171207
  67. LOPERAM [Concomitant]
     Route: 048
     Dates: start: 20171203, end: 20171204
  68. SPIROTONE [Concomitant]
     Route: 048
     Dates: start: 20171215, end: 20171218
  69. ANXIEDIN [Concomitant]
     Dosage: HSPRN
     Route: 048
     Dates: start: 20171205, end: 20171218
  70. MORPHINE HCL [Concomitant]
     Active Substance: MORPHINE HYDROCHLORIDE
     Route: 042
     Dates: start: 20171225, end: 20171226
  71. PRIMPERAN [Concomitant]
     Active Substance: METOCLOPRAMIDE HYDROCHLORIDE
     Dosage: AS NECESSARY
     Route: 042
     Dates: start: 20171218, end: 20171226
  72. GEMCITABINE [Concomitant]
     Active Substance: GEMCITABINE\GEMCITABINE HYDROCHLORIDE
     Dosage: CYCLE 2
     Route: 065
     Dates: start: 20170929
  73. GEMCITABINE [Concomitant]
     Active Substance: GEMCITABINE\GEMCITABINE HYDROCHLORIDE
     Dosage: CYCLE 3
     Route: 065
     Dates: start: 20171027
  74. ZYTIGA [Suspect]
     Active Substance: ABIRATERONE ACETATE
     Indication: PROSTATE CANCER
     Route: 048
     Dates: start: 20170719, end: 20171202
  75. TRAMAL [Concomitant]
     Active Substance: TRAMADOL
     Route: 042
     Dates: start: 20171212, end: 20171218
  76. AMINO ACIDS NOS W/POLYPEPTIDE [Concomitant]
     Dosage: 1 BOT
     Route: 042
     Dates: start: 20171208, end: 20171212
  77. AMINO ACIDS NOS W/POLYPEPTIDE [Concomitant]
     Dosage: 1 BOT
     Route: 042
     Dates: start: 20171207, end: 20171216
  78. NOREPINEPHRINE. [Concomitant]
     Active Substance: NOREPINEPHRINE
     Route: 042
     Dates: start: 20171226, end: 20171226
  79. CHLORPHENIRAMINE. [Concomitant]
     Active Substance: CHLORPHENIRAMINE
     Route: 042
     Dates: start: 20171203, end: 20171204
  80. NORMAL SALINE [Concomitant]
     Active Substance: SODIUM CHLORIDE
     Dosage: 500 CC
     Route: 042
     Dates: start: 20171203, end: 20171204
  81. NORMAL SALINE [Concomitant]
     Active Substance: SODIUM CHLORIDE
     Dosage: 250 CC
     Route: 042
     Dates: start: 20171212, end: 20171215
  82. NORMAL SALINE [Concomitant]
     Active Substance: SODIUM CHLORIDE
     Dosage: 500 CC
     Route: 042
     Dates: start: 20171221, end: 20171222
  83. GLUCOSE [Concomitant]
     Active Substance: DEXTROSE
     Dosage: 2 BG, 500 ML
     Route: 042
     Dates: start: 20171201, end: 20171201
  84. SOLU-CORTEF [Concomitant]
     Active Substance: HYDROCORTISONE SODIUM SUCCINATE
     Route: 042
     Dates: start: 20171203, end: 20171205
  85. INVANZ [Concomitant]
     Active Substance: ERTAPENEM SODIUM
     Route: 042
     Dates: start: 20171201, end: 20171202
  86. INVANZ [Concomitant]
     Active Substance: ERTAPENEM SODIUM
     Route: 042
     Dates: start: 20171201, end: 20171204
  87. PLASBUMIN [Concomitant]
     Active Substance: ALBUMIN HUMAN
     Dosage: 1 BOT (AFTERNOON)
     Route: 042
     Dates: start: 20171212, end: 20171215
  88. KCL [Concomitant]
     Active Substance: POTASSIUM CHLORIDE
     Route: 042
     Dates: start: 20171201, end: 20171203
  89. KCL [Concomitant]
     Active Substance: POTASSIUM CHLORIDE
     Route: 042
     Dates: start: 20171201, end: 20171203
  90. KCL [Concomitant]
     Active Substance: POTASSIUM CHLORIDE
     Route: 042
     Dates: start: 20171203, end: 20171203
  91. KCL [Concomitant]
     Active Substance: POTASSIUM CHLORIDE
     Route: 042
     Dates: start: 20171203, end: 20171205
  92. KCL [Concomitant]
     Active Substance: POTASSIUM CHLORIDE
     Route: 042
     Dates: start: 20171213, end: 20171215
  93. ROLIKAN [Concomitant]
     Route: 042
     Dates: start: 20171224, end: 20171226
  94. CALCIUM W/VITAMIN D NOS [Concomitant]
     Active Substance: CALCIUM\VITAMIN D
     Route: 042
     Dates: start: 20171203, end: 20171204
  95. CALCIUM W/VITAMIN D NOS [Concomitant]
     Active Substance: CALCIUM\VITAMIN D
     Route: 042
     Dates: start: 20171218, end: 20171219
  96. CRAVIT [Concomitant]
     Active Substance: LEVOFLOXACIN
     Route: 042
     Dates: start: 20171204, end: 20171211
  97. MAGNESIUM SULFATE. [Concomitant]
     Active Substance: MAGNESIUM SULFATE
     Dates: start: 20171205, end: 20171206
  98. MAGNESIUM SULFATE. [Concomitant]
     Active Substance: MAGNESIUM SULFATE
     Dates: start: 20171211, end: 20171212
  99. SPIROTONE [Concomitant]
     Route: 048
     Dates: start: 20171212, end: 20171213
  100. SPIROTONE [Concomitant]
     Route: 048
     Dates: start: 20171213, end: 20171215
  101. LIPOVENOES [Concomitant]
     Dosage: 1 BOT
     Route: 042
     Dates: start: 20171205, end: 20171208
  102. BENAZON [Concomitant]
     Route: 062
     Dates: start: 20171209, end: 20171223
  103. BENAZON [Concomitant]
     Route: 062
     Dates: start: 20171223, end: 20171226
  104. FLOMOXEF SODIUM [Concomitant]
     Active Substance: FLOMOXEF SODIUM
     Route: 042
     Dates: start: 20171211, end: 20171211
  105. FLAGYL [Concomitant]
     Active Substance: METRONIDAZOLE\METRONIDAZOLE HYDROCHLORIDE
     Route: 048
     Dates: start: 20171212, end: 20171226
  106. MUACTION [Concomitant]
     Route: 048
     Dates: start: 20171219, end: 20171225
  107. PHYTONADIONE. [Concomitant]
     Active Substance: PHYTONADIONE
     Route: 042
     Dates: start: 20171224, end: 20171226
  108. GEMCITABINE [Concomitant]
     Active Substance: GEMCITABINE\GEMCITABINE HYDROCHLORIDE
     Dosage: CYCLE 1
     Route: 065
     Dates: start: 20170830
  109. PEMBROLIZUMAB. [Concomitant]
     Active Substance: PEMBROLIZUMAB
     Route: 065
     Dates: start: 20171111
  110. AMINO ACIDS NOS W/POLYPEPTIDE [Concomitant]
     Dosage: 1 BOT
     Route: 042
     Dates: start: 20171203, end: 20171208
  111. NOREPINEPHRINE. [Concomitant]
     Active Substance: NOREPINEPHRINE
     Route: 042
     Dates: start: 20171201, end: 20171201
  112. DEXTROSE. [Concomitant]
     Active Substance: DEXTROSE
     Dosage: 500 CC
     Route: 042
     Dates: start: 20171224, end: 20171225
  113. DEXTROSE. [Concomitant]
     Active Substance: DEXTROSE
     Dosage: 250 CC
     Route: 042
     Dates: start: 20171226, end: 20171226
  114. CHLORPHENIRAMINE. [Concomitant]
     Active Substance: CHLORPHENIRAMINE
     Route: 042
     Dates: start: 20171211, end: 20171212
  115. CHLORPHENIRAMINE. [Concomitant]
     Active Substance: CHLORPHENIRAMINE
     Route: 042
     Dates: start: 20171221, end: 20171222
  116. NORMAL SALINE [Concomitant]
     Active Substance: SODIUM CHLORIDE
     Dosage: 500 CC
     Route: 042
     Dates: start: 20171209, end: 20171210
  117. SMECTA [Concomitant]
     Active Substance: MONTMORILLONITE
     Dosage: 1 WP
     Route: 048
     Dates: start: 20171201, end: 20171201
  118. SOLU-CORTEF [Concomitant]
     Active Substance: HYDROCORTISONE SODIUM SUCCINATE
     Route: 042
     Dates: start: 20171201, end: 20171201
  119. SOLU-CORTEF [Concomitant]
     Active Substance: HYDROCORTISONE SODIUM SUCCINATE
     Route: 042
     Dates: start: 20171212, end: 20171213
  120. KCL [Concomitant]
     Active Substance: POTASSIUM CHLORIDE
     Route: 042
     Dates: start: 20171203, end: 20171204
  121. KCL [Concomitant]
     Active Substance: POTASSIUM CHLORIDE
     Route: 042
     Dates: start: 20171209, end: 20171211
  122. KCL [Concomitant]
     Active Substance: POTASSIUM CHLORIDE
     Route: 042
     Dates: start: 20171213, end: 20171214
  123. KCL [Concomitant]
     Active Substance: POTASSIUM CHLORIDE
     Route: 042
     Dates: start: 20171215, end: 20171218
  124. LASIX [Concomitant]
     Active Substance: FUROSEMIDE
     Dosage: AT BEDTIME
     Route: 042
     Dates: start: 20171209, end: 20171210
  125. CALCIUM W/VITAMIN D NOS [Concomitant]
     Active Substance: CALCIUM\VITAMIN D
     Route: 042
     Dates: start: 20171203, end: 20171204
  126. MAGNESIUM SULFATE. [Concomitant]
     Active Substance: MAGNESIUM SULFATE
     Dates: start: 20171204, end: 20171205
  127. ANXIEDIN [Concomitant]
     Dosage: HSPRN
     Route: 048
     Dates: start: 20171218, end: 20171219
  128. CORTISONE ACETATE. [Concomitant]
     Active Substance: CORTISONE ACETATE
     Dosage: AFTERNOON OR EVENING
     Route: 048
     Dates: start: 20171214, end: 20171226
  129. PHYTONADIONE. [Concomitant]
     Active Substance: PHYTONADIONE
     Route: 042
     Dates: start: 20171224, end: 20171225
  130. DACARBAZINE. [Concomitant]
     Active Substance: DACARBAZINE
     Dosage: CYCLE 3
     Route: 065
     Dates: start: 20171027
  131. TRAMAL [Concomitant]
     Active Substance: TRAMADOL
     Route: 042
     Dates: start: 20171206, end: 20171212
  132. NOREPINEPHRINE. [Concomitant]
     Active Substance: NOREPINEPHRINE
     Route: 042
     Dates: start: 20171226, end: 20171226
  133. DEXTROSE. [Concomitant]
     Active Substance: DEXTROSE
     Route: 042
     Dates: start: 20171201, end: 20171212
  134. CHLORPHENIRAMINE. [Concomitant]
     Active Substance: CHLORPHENIRAMINE
     Route: 042
     Dates: start: 20171207, end: 20171207
  135. NORMAL SALINE [Concomitant]
     Active Substance: SODIUM CHLORIDE
     Dosage: 250 CC
     Route: 042
     Dates: start: 20171206, end: 20171207
  136. GLUCOSE [Concomitant]
     Active Substance: DEXTROSE
     Dosage: 2 BG, 400 ML
     Route: 042
     Dates: start: 20171201, end: 20171201
  137. PLASBUMIN [Concomitant]
     Active Substance: ALBUMIN HUMAN
     Dosage: 1 BOT
     Route: 042
     Dates: start: 20171204, end: 20171207
  138. PLASBUMIN [Concomitant]
     Active Substance: ALBUMIN HUMAN
     Dosage: 1 BOT
     Route: 042
     Dates: start: 20171207, end: 20171210
  139. NYSTATIN. [Concomitant]
     Active Substance: NYSTATIN
     Route: 048
     Dates: start: 20171218, end: 20171226
  140. LASIX [Concomitant]
     Active Substance: FUROSEMIDE
     Route: 042
     Dates: start: 20171203, end: 20171204
  141. LASIX [Concomitant]
     Active Substance: FUROSEMIDE
     Dosage: AT BEDTIME
     Route: 042
     Dates: start: 20171207, end: 20171209
  142. CALGLON [Concomitant]
     Route: 042
     Dates: start: 20171224, end: 20171226
  143. LOPERAM [Concomitant]
     Dosage: AS NECESSARY
     Route: 048
     Dates: start: 20171204, end: 20171207
  144. FLOMOXEF SODIUM [Concomitant]
     Active Substance: FLOMOXEF SODIUM
     Route: 042
     Dates: start: 20171211, end: 20171211
  145. CORTISONE ACETATE. [Concomitant]
     Active Substance: CORTISONE ACETATE
     Dosage: AFTERNOON OR EVENING
     Route: 048
     Dates: start: 20171214, end: 20171226
  146. EVEROLIMUS. [Concomitant]
     Active Substance: EVEROLIMUS
     Dosage: CYCLE 1
     Route: 065
     Dates: start: 20170830
  147. CISPLATIN. [Concomitant]
     Active Substance: CISPLATIN
     Indication: CHOLANGIOCARCINOMA
     Dosage: CYCLE 3
     Route: 065
     Dates: start: 20170803
  148. DEXTROSE. [Concomitant]
     Active Substance: DEXTROSE
     Route: 042
     Dates: start: 20171201, end: 20171206
  149. NORMAL SALINE [Concomitant]
     Active Substance: SODIUM CHLORIDE
     Dosage: 500 CC
     Route: 042
     Dates: start: 20171201, end: 20171201
  150. GLUCOSE [Concomitant]
     Active Substance: DEXTROSE
     Dosage: 2 BG, 400 ML
     Route: 042
     Dates: start: 20171219, end: 20171224
  151. KCL [Concomitant]
     Active Substance: POTASSIUM CHLORIDE
     Route: 042
     Dates: start: 20171201, end: 20171201
  152. KCL [Concomitant]
     Active Substance: POTASSIUM CHLORIDE
     Route: 042
     Dates: start: 20171207, end: 20171209
  153. KCL [Concomitant]
     Active Substance: POTASSIUM CHLORIDE
     Route: 042
     Dates: start: 20171214, end: 20171219
  154. LASIX [Concomitant]
     Active Substance: FUROSEMIDE
     Dosage: AT BEDTIME
     Route: 042
     Dates: start: 20171206, end: 20171207
  155. LASIX [Concomitant]
     Active Substance: FUROSEMIDE
     Dosage: AT BEDTIME
     Route: 042
     Dates: start: 20171211, end: 20171212
  156. LIPOVENOES [Concomitant]
     Dosage: 1 BOT
     Route: 042
     Dates: start: 20171211, end: 20171212
  157. LENOGRASTIM [Concomitant]
     Active Substance: LENOGRASTIM
     Route: 058
     Dates: start: 20171205, end: 20171208
  158. FLOMOXEF SODIUM [Concomitant]
     Active Substance: FLOMOXEF SODIUM
     Route: 042
     Dates: start: 20171211, end: 20171211
  159. MORPHINE HCL [Concomitant]
     Active Substance: MORPHINE HYDROCHLORIDE
     Route: 042
     Dates: start: 20171225, end: 20171226
  160. PREDNISOLONE. [Concomitant]
     Active Substance: PREDNISOLONE
     Dosage: AFTERNOON OR EVENING
     Route: 048
     Dates: start: 20171213, end: 20171214
  161. MEGEJOHN [Concomitant]
     Route: 048
     Dates: start: 20171218, end: 20171226
  162. BISACODYL. [Concomitant]
     Active Substance: BISACODYL
     Dosage: BOT (AS NECESSARY)
     Route: 054
     Dates: start: 20171223, end: 20171226
  163. TRAMAL [Concomitant]
     Active Substance: TRAMADOL
     Route: 042
     Dates: start: 20171205, end: 20171206
  164. TRAMAL [Concomitant]
     Active Substance: TRAMADOL
     Route: 042
     Dates: start: 20171218, end: 20171225
  165. NOREPINEPHRINE. [Concomitant]
     Active Substance: NOREPINEPHRINE
     Dosage: AS NECESSARY
     Route: 042
     Dates: start: 20171201, end: 20171206
  166. DEXTROSE. [Concomitant]
     Active Substance: DEXTROSE
     Dosage: 250 CC
     Route: 042
     Dates: start: 20171226, end: 20171226
  167. NORMAL SALINE [Concomitant]
     Active Substance: SODIUM CHLORIDE
     Dosage: 500 CC
     Route: 042
     Dates: start: 20171201, end: 20171206
  168. NORMAL SALINE [Concomitant]
     Active Substance: SODIUM CHLORIDE
     Dosage: 250 CC
     Route: 042
     Dates: start: 20171204, end: 20171205
  169. NORMAL SALINE [Concomitant]
     Active Substance: SODIUM CHLORIDE
     Dosage: 500 CC
     Route: 042
     Dates: start: 20171206, end: 20171207
  170. NORMAL SALINE [Concomitant]
     Active Substance: SODIUM CHLORIDE
     Dosage: 500 CC
     Route: 042
     Dates: start: 20171207, end: 20171207
  171. SMECTA [Concomitant]
     Active Substance: MONTMORILLONITE
     Dosage: 1 WP (AS NECESSARY)
     Route: 048
     Dates: start: 20171201, end: 20171214
  172. SOLU-CORTEF [Concomitant]
     Active Substance: HYDROCORTISONE SODIUM SUCCINATE
     Route: 042
     Dates: start: 20171201, end: 20171203
  173. PLASBUMIN [Concomitant]
     Active Substance: ALBUMIN HUMAN
     Dosage: 1 BOT (AFTERNOON)
     Route: 042
     Dates: start: 20171207, end: 20171210
  174. KCL [Concomitant]
     Active Substance: POTASSIUM CHLORIDE
     Route: 042
     Dates: start: 20171205, end: 20171206
  175. KCL [Concomitant]
     Active Substance: POTASSIUM CHLORIDE
     Route: 042
     Dates: start: 20171205, end: 20171207
  176. KCL [Concomitant]
     Active Substance: POTASSIUM CHLORIDE
     Route: 042
     Dates: start: 20171206, end: 20171207

REACTIONS (1)
  - Malignant neoplasm progression [Fatal]
